FAERS Safety Report 6086031-7 (Version None)
Quarter: 2009Q1

REPORT INFORMATION
  Report Type: 
  Country: None (occurrence: None)
  Receive Date: 20090220
  Receipt Date: 20090219
  Transmission Date: 20090719
  Serious: Yes (Life-Threatening, Hospitalization)
  Sender: FDA-Public Use
  Company Number: BR-ASTRAZENECA-2009UW04788

PATIENT
  Age: 50 Year
  Sex: Female
  Weight: 82 kg

DRUGS (5)
  1. ATENOLOL [Suspect]
     Dosage: 125MG
     Route: 048
     Dates: end: 20081201
  2. ATENOLOL [Suspect]
     Dosage: 100MG
     Route: 048
     Dates: start: 20081201
  3. ATACAND [Suspect]
     Route: 048
     Dates: end: 20081201
  4. ATACAND HCT [Suspect]
     Dosage: 16/12.5MG
     Route: 048
     Dates: start: 20081201
  5. FUROSEMIDE [Concomitant]
     Indication: DIURETIC THERAPY
     Route: 048
     Dates: end: 20080101

REACTIONS (3)
  - ANAEMIA [None]
  - BLOOD PRESSURE FLUCTUATION [None]
  - INFARCTION [None]
